FAERS Safety Report 15246259 (Version 4)
Quarter: 2018Q3

REPORT INFORMATION
  Report Type: Spontaneous
  Country: US (occurrence: US)
  Receive Date: 20180806
  Receipt Date: 20180816
  Transmission Date: 20181010
  Serious: Yes (Other)
  Sender: FDA-Public Use
  Company Number: US-GLAXOSMITHKLINE-US2018136395

PATIENT
  Age: 70 Year
  Sex: Female

DRUGS (3)
  1. FLOVENT [Suspect]
     Active Substance: FLUTICASONE PROPIONATE
     Dosage: UNK
  2. FLOVENT [Suspect]
     Active Substance: FLUTICASONE PROPIONATE
     Indication: PRODUCT USED FOR UNKNOWN INDICATION
     Dosage: 1 PUFF(S), BID
     Route: 055
     Dates: start: 2001
  3. FLOVENT [Suspect]
     Active Substance: FLUTICASONE PROPIONATE
     Dosage: 2 PUFF(S), BID
     Route: 055
     Dates: start: 2018

REACTIONS (12)
  - Wrong technique in device usage process [Unknown]
  - Chest injury [Unknown]
  - Laceration [Recovering/Resolving]
  - Dyspnoea [Unknown]
  - Intentional underdose [Unknown]
  - Intentional product misuse [Unknown]
  - Wrong technique in product usage process [Unknown]
  - Product storage error [Unknown]
  - Fall [Recovering/Resolving]
  - Body height decreased [Unknown]
  - Head injury [Recovering/Resolving]
  - Body height increased [Unknown]

NARRATIVE: CASE EVENT DATE: 20180804
